FAERS Safety Report 24035039 (Version 2)
Quarter: 2024Q3

REPORT INFORMATION
  Report Type: Report from Study
  Country: DE (occurrence: DE)
  Receive Date: 20240701
  Receipt Date: 20240702
  Transmission Date: 20241016
  Serious: Yes (Death, Congenital Anomaly, Other)
  Sender: UCB
  Company Number: DE-UCBSA-2024033029

PATIENT

DRUGS (1)
  1. LEVETIRACETAM [Suspect]
     Active Substance: LEVETIRACETAM
     Indication: Product used for unknown indication
     Dosage: 2000 MILLIGRAM DAILY
     Route: 064

REACTIONS (3)
  - Death neonatal [Fatal]
  - Potter^s syndrome [Unknown]
  - Maternal exposure during pregnancy [Unknown]
